FAERS Safety Report 24595701 (Version 2)
Quarter: 2025Q3

REPORT INFORMATION
  Report Type: Report from Study
  Country: ZA (occurrence: ZA)
  Receive Date: 20241109
  Receipt Date: 20250803
  Transmission Date: 20251021
  Serious: Yes (Hospitalization)
  Sender: ALEXION PHARMACEUTICALS
  Company Number: ZA-AstraZeneca-CH-00741607A

PATIENT
  Age: 70 Year
  Sex: Female

DRUGS (7)
  1. DAPAGLIFLOZIN [Suspect]
     Active Substance: DAPAGLIFLOZIN
  2. ZOLPIDEM TARTRATE [Concomitant]
     Active Substance: ZOLPIDEM TARTRATE
  3. ESTRADIOL [Concomitant]
     Active Substance: ESTRADIOL
  4. LOPERAMIDE [Concomitant]
     Active Substance: LOPERAMIDE
  5. FUCIDIN [Concomitant]
     Active Substance: FUSIDATE SODIUM
  6. RIVAROXABAN [Concomitant]
     Active Substance: RIVAROXABAN
  7. MUPIROCIN [Concomitant]
     Active Substance: MUPIROCIN

REACTIONS (1)
  - Hernia [Unknown]
